FAERS Safety Report 17443864 (Version 1)
Quarter: 2020Q1

REPORT INFORMATION
  Report Type: Spontaneous
  Country: US (occurrence: US)
  Receive Date: 20200220
  Receipt Date: 20200220
  Transmission Date: 20200409
  Serious: Yes (Hospitalization)
  Sender: FDA-Public Use
  Company Number: None

PATIENT
  Age: 64 Year
  Sex: Female
  Weight: 60.75 kg

DRUGS (1)
  1. AUGMENTIN [Suspect]
     Active Substance: AMOXICILLIN\CLAVULANATE POTASSIUM
     Indication: INFECTION
     Dates: start: 20200210, end: 20200211

REACTIONS (2)
  - Nausea [None]
  - Vomiting [None]

NARRATIVE: CASE EVENT DATE: 20200210
